FAERS Safety Report 20526509 (Version 3)
Quarter: 2023Q2

REPORT INFORMATION
  Report Type: Spontaneous
  Country: US (occurrence: US)
  Receive Date: 20220228
  Receipt Date: 20230421
  Transmission Date: 20230722
  Serious: Yes (Other)
  Sender: FDA-Public Use
  Company Number: US-PFIZER INC-2021785813

PATIENT
  Age: 50 Year
  Sex: Female

DRUGS (1)
  1. XELJANZ XR [Suspect]
     Active Substance: TOFACITINIB CITRATE
     Dosage: 11 MG

REACTIONS (8)
  - Immunodeficiency [Unknown]
  - Weight increased [Unknown]
  - Pain [Unknown]
  - Crying [Unknown]
  - Dysstasia [Unknown]
  - Gait inability [Unknown]
  - Dyspnoea [Unknown]
  - Muscle disorder [Unknown]
